FAERS Safety Report 4618772-X (Version None)
Quarter: 2005Q1

REPORT INFORMATION
  Report Type: 
  Country: None (occurrence: None)
  Receive Date: 20050323
  Receipt Date: 20050311
  Transmission Date: 20050727
  Serious: Yes (Disabling, Other)
  Sender: FDA-Public Use
  Company Number: 2005044792

PATIENT
  Sex: Female

DRUGS (5)
  1. NEURONTIN [Suspect]
     Indication: SCIATICA
     Dosage: 600 MG (200 MG, 3 IN 1 D), ORAL
     Route: 048
     Dates: start: 20030101
  2. MORPHINE SULFATE [Suspect]
     Indication: ILL-DEFINED DISORDER
     Dosage: 90 MG, 1 IN 1 D, ORAL
     Route: 048
     Dates: start: 20040501
  3. OXYCODONE HYDROCHLORIDE (OXYCODONE HYDROCHLORIDE) [Suspect]
     Indication: ILL-DEFINED DISORDER
  4. CARISOPRODOL [Concomitant]
  5. TIZANIDINE HCL [Concomitant]

REACTIONS (16)
  - ACCIDENT [None]
  - BALANCE DISORDER [None]
  - CHEST DISCOMFORT [None]
  - DISORIENTATION [None]
  - DRUG INEFFECTIVE [None]
  - FATIGUE [None]
  - FEELING ABNORMAL [None]
  - FIBROMYALGIA [None]
  - HEART RATE INCREASED [None]
  - HYPERSENSITIVITY [None]
  - INTERVERTEBRAL DISC PROTRUSION [None]
  - LOSS OF CONSCIOUSNESS [None]
  - PAIN [None]
  - PHARMACEUTICAL PRODUCT COMPLAINT [None]
  - RESPIRATORY DISTRESS [None]
  - SEDATION [None]
